FAERS Safety Report 10172188 (Version 2)
Quarter: 2014Q2

REPORT INFORMATION
  Report Type: Report from Study
  Country: CA (occurrence: CA)
  Receive Date: 20140515
  Receipt Date: 20140515
  Transmission Date: 20141212
  Serious: Yes (Hospitalization, Other)
  Sender: FDA-Public Use
  Company Number: PHHY2014CA056102

PATIENT
  Age: 66 Year
  Sex: Female

DRUGS (2)
  1. CLOZARIL [Suspect]
     Dosage: UNK
     Route: 048
     Dates: start: 20100615
  2. ANTIPSYCHOTICS [Concomitant]

REACTIONS (9)
  - Hip fracture [Unknown]
  - Wrist fracture [Unknown]
  - Cholelithiasis [Unknown]
  - Constipation [Unknown]
  - Escherichia urinary tract infection [Unknown]
  - Haemoglobin decreased [Unknown]
  - Neutrophil count increased [Unknown]
  - Blood glucose increased [Unknown]
  - Blood albumin decreased [Unknown]
